FAERS Safety Report 20884339 (Version 1)
Quarter: 2022Q2

REPORT INFORMATION
  Report Type: Other
  Country: KR (occurrence: None)
  Receive Date: 20220527
  Receipt Date: 20220527
  Transmission Date: 20220721
  Serious: Yes (Hospitalization)
  Sender: FDA-Public Use
  Company Number: KR-ROCHE-3019129

PATIENT
  Age: 62 Year
  Sex: Male
  Weight: 77.5 kg

DRUGS (8)
  1. ATEZOLIZUMAB [Suspect]
     Active Substance: ATEZOLIZUMAB
     Indication: Hepatocellular carcinoma
     Dosage: HE RECEIVED SUBSEQUENT DOSES ON 25/NOV/2021, 16/DEC/2021, 07/JAN/2021, 04 FEB/2022, 25/FEB/2022, 18/
     Route: 041
     Dates: start: 20211105
  2. BEVACIZUMAB [Suspect]
     Active Substance: BEVACIZUMAB
     Indication: Hepatocellular carcinoma
     Dosage: HE RECEIVED SUBSEQUENT DOSES ON 25/NOV/2021, 16/DEC/2021, 07/JAN/2022, 04 FEB/2022, 25/FEB/2022, 18/
     Route: 042
     Dates: start: 20211105
  3. VIREAD [Concomitant]
     Active Substance: TENOFOVIR DISOPROXIL FUMARATE
     Indication: Hepatitis B
     Dates: start: 20211102
  4. AMLODIPINE CAMSYLATE [Concomitant]
     Active Substance: AMLODIPINE CAMSYLATE
     Indication: Hypertension
     Dates: start: 2017
  5. URSODIOL [Concomitant]
     Active Substance: URSODIOL
  6. REBAMIPIDE [Concomitant]
     Active Substance: REBAMIPIDE
  7. DIMETHICONE\PANCRELIPASE\URSODIOL [Concomitant]
     Active Substance: DIMETHICONE\PANCRELIPASE\URSODIOL
     Indication: Dyspepsia
  8. HEPA-MERZ [Concomitant]
     Dates: start: 20211106

REACTIONS (3)
  - Pyrexia [Recovered/Resolved]
  - Decreased appetite [Recovering/Resolving]
  - Hypoalbuminaemia [Recovering/Resolving]

NARRATIVE: CASE EVENT DATE: 20220127
